FAERS Safety Report 21423983 (Version 1)
Quarter: 2022Q4

REPORT INFORMATION
  Report Type: Spontaneous
  Country: US (occurrence: None)
  Receive Date: 20221006
  Receipt Date: 20221006
  Transmission Date: 20230112
  Serious: Yes (Hospitalization)
  Sender: FDA-Public Use
  Company Number: None

PATIENT
  Sex: Female

DRUGS (14)
  1. FLUTICASONE [Suspect]
     Active Substance: FLUTICASONE
     Indication: Cystic fibrosis
     Dosage: 50 MCG/ACT NASAL??USE 1 SPRAY IN BOTH NOSTRILS TWO TIMES DAILY
     Route: 045
     Dates: start: 20220412
  2. ADVAIR HFA [Concomitant]
     Active Substance: FLUTICASONE PROPIONATE\SALMETEROL XINAFOATE
  3. ALBUTEROL [Concomitant]
     Active Substance: ALBUTEROL
  4. AZELASTINE HYDROCHLORIDE [Concomitant]
     Active Substance: AZELASTINE HYDROCHLORIDE
  5. CETIRIZINE [Concomitant]
     Active Substance: CETIRIZINE HYDROCHLORIDE
  6. COMPLETE FORM SOFTGEL [Concomitant]
  7. SODIUM CHLORIDE [Concomitant]
     Active Substance: SODIUM CHLORIDE
  8. MIRTAZAPINE [Concomitant]
     Active Substance: MIRTAZAPINE
  9. MONTELUKAST SODIUM [Concomitant]
     Active Substance: MONTELUKAST SODIUM
  10. PULMOZYME [Concomitant]
  11. URSODIOL [Concomitant]
  12. VITAMIN A [Concomitant]
     Active Substance: VITAMIN A
  13. VITAMIN E [Concomitant]
     Active Substance: .ALPHA.-TOCOPHEROL
  14. ZENPEP [Concomitant]
     Active Substance: PANCRELIPASE AMYLASE\PANCRELIPASE LIPASE\PANCRELIPASE PROTEASE

REACTIONS (1)
  - Hospitalisation [None]
